FAERS Safety Report 20668849 (Version 1)
Quarter: 2022Q2

REPORT INFORMATION
  Report Type: Report from Study
  Country: US (occurrence: US)
  Receive Date: 20220404
  Receipt Date: 20220404
  Transmission Date: 20220721
  Serious: Yes (Hospitalization)
  Sender: FDA-Public Use
  Company Number: US-Accord-259208

PATIENT
  Age: 76 Year
  Sex: Female
  Weight: 79.38 kg

DRUGS (6)
  1. CLOZAPINE [Suspect]
     Active Substance: CLOZAPINE
     Indication: Product used for unknown indication
     Dosage: 100 MG WITH BREAKFAST AND 150 MG AT NIGHT
  2. FOLIC ACID [Concomitant]
     Active Substance: FOLIC ACID
     Dosage: 1 MG TAB DAILY
  3. UMECLIDINIUM [Concomitant]
     Active Substance: UMECLIDINIUM
     Dosage: ONCE INHALATION DAILY
  4. LAMICTAL [Concomitant]
     Active Substance: LAMOTRIGINE
     Dosage: 100 MG TAB DAILY
  5. SYNTHROID [Concomitant]
     Active Substance: LEVOTHYROXINE SODIUM
     Dosage: 75 MCG TABLET ONCE IN AM
  6. TRIHEXYPHENIDYL [Concomitant]
     Active Substance: TRIHEXYPHENIDYL
     Dosage: 2 MG TABLET, TWICE A DAY

REACTIONS (2)
  - Encephalopathy [Unknown]
  - Influenza [Unknown]

NARRATIVE: CASE EVENT DATE: 20220324
